FAERS Safety Report 22539603 (Version 1)
Quarter: 2023Q2

REPORT INFORMATION
  Report Type: Spontaneous
  Country: US (occurrence: US)
  Receive Date: 20230609
  Receipt Date: 20230609
  Transmission Date: 20230722
  Serious: No
  Sender: FDA-Public Use
  Company Number: US-SPECGX-T202201790

PATIENT
  Sex: Male
  Weight: 119 kg

DRUGS (1)
  1. ACETAMINOPHEN\HYDROCODONE [Suspect]
     Active Substance: ACETAMINOPHEN\HYDROCODONE
     Indication: Pain
     Dosage: UNK, ONE AND HALF TABLET
     Route: 065

REACTIONS (3)
  - Product taste abnormal [Unknown]
  - Drug ineffective [Not Recovered/Not Resolved]
  - Wrong technique in product usage process [Unknown]
